FAERS Safety Report 8085935-3 (Version None)
Quarter: 2012Q1

REPORT INFORMATION
  Report Type: 
  Country: None (occurrence: None)
  Receive Date: 20120130
  Receipt Date: 20080901
  Transmission Date: 20120608
  Serious: Yes (Other)
  Sender: FDA-Public Use
  Company Number: GB-SANTEN INC.-INC-11-000232

PATIENT
  Age: 25 Year
  Sex: Male

DRUGS (4)
  1. LATANOPROST [Suspect]
     Indication: GLAUCOMA
  2. TIMOLOL MALEATE [Suspect]
     Indication: GLAUCOMA
     Route: 047
  3. PILOCARPINE [Suspect]
     Indication: GLAUCOMA
  4. DORZOLAMIDE [Suspect]
     Indication: GLAUCOMA

REACTIONS (1)
  - INTRAOCULAR PRESSURE INCREASED [None]
